FAERS Safety Report 7007340-0 (Version None)
Quarter: 2010Q3

REPORT INFORMATION
  Report Type: 
  Country: None (occurrence: None)
  Receive Date: 20100922
  Receipt Date: 20100910
  Transmission Date: 20110219
  Serious: Yes (Hospitalization, Other)
  Sender: FDA-Public Use
  Company Number: US-CELGENEUS-163-21880-10081572

PATIENT
  Sex: Male

DRUGS (4)
  1. REVLIMID [Suspect]
     Indication: MULTIPLE MYELOMA
     Route: 048
     Dates: start: 20070501
  2. REVLIMID [Suspect]
     Route: 048
     Dates: start: 20090701
  3. REVLIMID [Suspect]
     Route: 048
     Dates: start: 20100309, end: 20100622
  4. REVLIMID [Suspect]
     Route: 048
     Dates: start: 20100820

REACTIONS (3)
  - LOBAR PNEUMONIA [None]
  - MULTIPLE MYELOMA [None]
  - NEUROPATHY PERIPHERAL [None]
